FAERS Safety Report 24435220 (Version 2)
Quarter: 2025Q1

REPORT INFORMATION
  Report Type: Spontaneous
  Country: US (occurrence: US)
  Receive Date: 20241015
  Receipt Date: 20250307
  Transmission Date: 20250409
  Serious: No
  Sender: SANOFI AVENTIS
  Company Number: US-SA-2024SA294242

PATIENT
  Age: 51 Year
  Sex: Female
  Weight: 83.64 kg

DRUGS (13)
  1. DUPILUMAB [Suspect]
     Active Substance: DUPILUMAB
     Indication: Dermatitis atopic
     Dosage: 300 MG, QOW
     Route: 058
     Dates: start: 2024
  2. LISINOPRIL [Concomitant]
     Active Substance: LISINOPRIL
  3. POTASSIUM CITRATE [Concomitant]
     Active Substance: POTASSIUM CITRATE
  4. CELEBREX [Concomitant]
     Active Substance: CELECOXIB
  5. LIOTHYRONINE SODIUM [Concomitant]
     Active Substance: LIOTHYRONINE SODIUM
  6. SYNTHROID [Concomitant]
     Active Substance: LEVOTHYROXINE SODIUM
  7. VITAMIN D3 [Concomitant]
     Active Substance: CHOLECALCIFEROL
  8. ZETIA [Concomitant]
     Active Substance: EZETIMIBE
  9. ROSUVASTATIN CALCIUM [Concomitant]
     Active Substance: ROSUVASTATIN CALCIUM
  10. VANICREAM [Concomitant]
     Active Substance: TITANIUM DIOXIDE\ZINC OXIDE
  11. DEXAMETHASONE [Concomitant]
     Active Substance: DEXAMETHASONE
  12. TRIAMCINOLONE ACETONIDE [Concomitant]
     Active Substance: TRIAMCINOLONE ACETONIDE
  13. TACROLIMUS [Concomitant]
     Active Substance: TACROLIMUS

REACTIONS (6)
  - Paraesthesia oral [Unknown]
  - Tongue erythema [Unknown]
  - Herpes zoster [Not Recovered/Not Resolved]
  - Rash [Not Recovered/Not Resolved]
  - Tongue eruption [Not Recovered/Not Resolved]
  - Injection site pain [Unknown]

NARRATIVE: CASE EVENT DATE: 20240101
